FAERS Safety Report 8341110-6 (Version None)
Quarter: 2012Q2

REPORT INFORMATION
  Report Type: 
  Country: None (occurrence: None)
  Receive Date: 20120507
  Receipt Date: 20120502
  Transmission Date: 20120825
  Serious: Yes (Hospitalization)
  Sender: FDA-Public Use
  Company Number: US-GLAXOSMITHKLINE-A0976304A

PATIENT
  Age: 71 Year
  Sex: Male
  Weight: 94.9 kg

DRUGS (8)
  1. LISINOPRIL [Concomitant]
  2. PAZOPANIB [Suspect]
     Indication: SMALL CELL LUNG CANCER STAGE UNSPECIFIED
     Dosage: 800MG PER DAY
     Route: 048
     Dates: start: 20120214
  3. PROCHLOROPERAZINE [Concomitant]
  4. MAGNESIUM OXIDE [Concomitant]
  5. NIASPAN [Concomitant]
  6. ASPIRIN [Concomitant]
  7. METOPROLOL TARTRATE [Concomitant]
  8. PRAVASTATIN [Concomitant]

REACTIONS (3)
  - AMYLASE INCREASED [None]
  - LIPASE INCREASED [None]
  - PANCREATITIS [None]
